FAERS Safety Report 5149184-0 (Version None)
Quarter: 2006Q4

REPORT INFORMATION
  Report Type: 
  Country: None (occurrence: None)
  Receive Date: 20061113
  Receipt Date: 20060828
  Transmission Date: 20070319
  Serious: No
  Sender: FDA-Public Use
  Company Number: US-GLAXOSMITHKLINE-A0618269A

PATIENT
  Age: 50 Year
  Sex: Female

DRUGS (5)
  1. COREG [Suspect]
     Route: 048
     Dates: start: 20050101, end: 20050201
  2. APO-METROPOLOL [Concomitant]
  3. SORBIDE [Concomitant]
  4. PLAVIX [Concomitant]
  5. ZETIA [Concomitant]

REACTIONS (1)
  - SOMNOLENCE [None]
